FAERS Safety Report 13054547 (Version 1)
Quarter: 2016Q4

REPORT INFORMATION
  Report Type: Other
  Country: None (occurrence: FR)
  Receive Date: 20161222
  Receipt Date: 20161222
  Transmission Date: 20170207
  Serious: Yes (Other)
  Sender: FDA-Public Use
  Company Number: FR-CELLTRION INC.-2016FR013618

PATIENT

DRUGS (5)
  1. INFLIXIMAB [Suspect]
     Active Substance: INFLIXIMAB
     Indication: CROHN^S DISEASE
     Dosage: 100 MG, SINGLE
     Dates: start: 20160322, end: 20160322
  2. IMUREL                             /00001501/ [Concomitant]
     Active Substance: AZATHIOPRINE SODIUM
  3. INFLECTRA [Suspect]
     Active Substance: INFLIXIMAB-DYYB
     Dosage: 100 MG, MONTHLY
     Route: 042
     Dates: start: 20160726, end: 20160726
  4. UVEDOSE [Concomitant]
     Active Substance: CHOLECALCIFEROL
     Indication: CROHN^S DISEASE
  5. INFLECTRA [Suspect]
     Active Substance: INFLIXIMAB-DYYB
     Indication: CROHN^S DISEASE
     Dosage: 100 MG, MONTHLY
     Route: 042
     Dates: start: 20160406, end: 20160406

REACTIONS (3)
  - Therapeutic response unexpected [Recovering/Resolving]
  - Crohn^s disease [Recovering/Resolving]
  - Abnormal behaviour [Unknown]

NARRATIVE: CASE EVENT DATE: 20160815
